FAERS Safety Report 11473355 (Version 1)
Quarter: 2015Q3

REPORT INFORMATION
  Report Type: Spontaneous
  Country: US (occurrence: US)
  Receive Date: 20150908
  Receipt Date: 20150908
  Transmission Date: 20151125
  Serious: Yes (Hospitalization)
  Sender: FDA-Public Use
  Company Number: US-AMEDRA PHARMACEUTICALS LLC-2014AMD00011

PATIENT
  Age: 28 Day
  Sex: Female
  Weight: 68.93 kg

DRUGS (1)
  1. EPINEPHRINE. [Suspect]
     Active Substance: EPINEPHRINE
     Indication: CONTRAST MEDIA REACTION
     Dosage: 0.3 MG, ONCE
     Route: 030
     Dates: start: 20140612, end: 20140612

REACTIONS (2)
  - Injection site haemorrhage [Recovered/Resolved]
  - Therapeutic response decreased [Recovered/Resolved]

NARRATIVE: CASE EVENT DATE: 20140612
